FAERS Safety Report 21191984 (Version 7)
Quarter: 2022Q4

REPORT INFORMATION
  Report Type: Report from Study
  Country: US (occurrence: US)
  Receive Date: 20220809
  Receipt Date: 20221207
  Transmission Date: 20230112
  Serious: No
  Sender: FDA-Public Use
  Company Number: US-KYOWAKIRIN-2022BKK012428

PATIENT

DRUGS (1)
  1. MOGAMULIZUMAB [Suspect]
     Active Substance: MOGAMULIZUMAB
     Indication: Product used for unknown indication
     Dosage: UNK, 1X/3 WEEKS (20 MG/5 ML)
     Route: 042
     Dates: start: 20220804, end: 20220816

REACTIONS (19)
  - Feeling abnormal [Unknown]
  - Skin fissures [Unknown]
  - Urinary incontinence [Unknown]
  - Skin exfoliation [Unknown]
  - Skin lesion [Unknown]
  - Fall [Unknown]
  - Decreased appetite [Unknown]
  - Abdominal discomfort [Unknown]
  - Rash [Unknown]
  - Pain [Unknown]
  - Burning sensation [Unknown]
  - Pruritus [Unknown]
  - Chills [Unknown]
  - Pruritus [Unknown]
  - Dizziness [Unknown]
  - Headache [Unknown]
  - Rash [Unknown]
  - Sneezing [Unknown]
  - Inappropriate schedule of product administration [Unknown]

NARRATIVE: CASE EVENT DATE: 20220801
